FAERS Safety Report 8610028 (Version 2)
Quarter: 2014Q1

REPORT INFORMATION
  Report Type: Spontaneous
  Country: US (occurrence: US)
  Receive Date: 20120612
  Receipt Date: 20140319
  Transmission Date: 20141002
  Serious: Yes (Hospitalization)
  Sender: FDA-Public Use
  Company Number: US-AMGEN-USASP2012035412

PATIENT
  Age: 78 Year
  Sex: Female

DRUGS (1)
  1. ENBREL [Suspect]
     Indication: RHEUMATOID ARTHRITIS
     Dosage: 50 MG, QWK
     Route: 065
     Dates: start: 20110319

REACTIONS (8)
  - Hospitalisation [Not Recovered/Not Resolved]
  - Pulmonary embolism [Recovered/Resolved]
  - Vascular rupture [Recovered/Resolved]
  - Haemorrhage [Recovered/Resolved]
  - Consciousness fluctuating [Recovered/Resolved]
  - Depressed level of consciousness [Recovered/Resolved]
  - Osteoporosis [Not Recovered/Not Resolved]
  - Memory impairment [Unknown]
